FAERS Safety Report 8264006-7 (Version None)
Quarter: 2012Q2

REPORT INFORMATION
  Report Type: 
  Country: None (occurrence: None)
  Receive Date: 20120406
  Receipt Date: 20120330
  Transmission Date: 20120825
  Serious: No
  Sender: FDA-Public Use
  Company Number: US-BIOGENIDEC-2011BI035491

PATIENT
  Age: 38 Year
  Sex: Female

DRUGS (4)
  1. BENADRYL [Concomitant]
     Indication: PREMEDICATION
  2. AVONEX [Concomitant]
     Indication: MULTIPLE SCLEROSIS
     Route: 030
     Dates: start: 19991101
  3. AVONEX [Concomitant]
     Route: 030
     Dates: start: 20030201
  4. TYSABRI [Suspect]
     Indication: MULTIPLE SCLEROSIS
     Route: 042
     Dates: start: 20110805

REACTIONS (14)
  - ANXIETY [None]
  - COUGH [None]
  - PAIN [None]
  - TREMOR [None]
  - FOOD ALLERGY [None]
  - PAIN IN EXTREMITY [None]
  - CHOKING [None]
  - MALAISE [None]
  - RASH [None]
  - HEADACHE [None]
  - DYSPNOEA [None]
  - URTICARIA [None]
  - BLOOD PRESSURE INCREASED [None]
  - FLUSHING [None]
